FAERS Safety Report 4446898-2 (Version None)
Quarter: 2004Q3

REPORT INFORMATION
  Report Type: 
  Country: None (occurrence: None)
  Receive Date: 20040908
  Receipt Date: 20040903
  Transmission Date: 20050211
  Serious: Yes (Hospitalization)
  Sender: FDA-Public Use
  Company Number: CA-2004-030761

PATIENT
  Age: 33 Year
  Sex: Male

DRUGS (6)
  1. LEUKINE [Suspect]
     Indication: CROHN'S DISEASE
     Dosage: 6 UG/KG, 1X/DAY, SUBCUTANEOUS
     Route: 058
     Dates: start: 20040729, end: 20040820
  2. LEUKINE [Suspect]
     Indication: CROHN'S DISEASE
     Dosage: 6 UG/KG, 1X/DAY, SUBCUTANEOUS
     Route: 058
     Dates: start: 20040822
  3. PLACEBO (GM-CSF (9874)) INJECTION [Suspect]
  4. VITAMIN D [Concomitant]
  5. CALCIUM (CALCIUM) [Concomitant]
  6. KCL TAB [Concomitant]

REACTIONS (2)
  - CONDITION AGGRAVATED [None]
  - PERIANAL ABSCESS [None]
